FAERS Safety Report 4927856-8 (Version None)
Quarter: 2006Q1

REPORT INFORMATION
  Report Type: 
  Country: None (occurrence: None)
  Receive Date: 20060228
  Receipt Date: 20060127
  Transmission Date: 20060701
  Serious: Yes (Hospitalization)
  Sender: FDA-Public Use
  Company Number: US-GLAXOSMITHKLINE-A0591274A

PATIENT
  Age: 75 Year
  Sex: Male
  Weight: 63.6 kg

DRUGS (11)
  1. ZOFRAN [Suspect]
     Indication: PROPHYLAXIS OF NAUSEA AND VOMITING
     Dosage: 4MG AS REQUIRED
     Route: 048
     Dates: start: 20051229, end: 20051201
  2. ALIMTA [Suspect]
     Indication: CHEMOTHERAPY
     Route: 065
  3. TOPROL-XL [Concomitant]
  4. VITAMIN [Concomitant]
  5. B-12 VITAMIN [Concomitant]
  6. INTRAVENOUS FLUIDS [Concomitant]
     Route: 042
     Dates: start: 20051229
  7. COMPAZINE [Concomitant]
     Dates: end: 20051229
  8. SOLU-MEDROL [Concomitant]
     Dates: start: 20051229
  9. LASIX [Concomitant]
  10. K-TAB [Concomitant]
  11. FOLIC ACID [Concomitant]

REACTIONS (22)
  - ABDOMINAL PAIN [None]
  - ANAEMIA [None]
  - ASTHENIA [None]
  - BLOOD ALKALINE PHOSPHATASE INCREASED [None]
  - CARDIOACTIVE DRUG LEVEL INCREASED [None]
  - DEHYDRATION [None]
  - DIFFICULTY IN WALKING [None]
  - DISORIENTATION [None]
  - DRUG INEFFECTIVE [None]
  - DYSURIA [None]
  - FOREIGN BODY ASPIRATION [None]
  - LUNG INFILTRATION [None]
  - MENTAL STATUS CHANGES [None]
  - PNEUMONIA ASPIRATION [None]
  - POLLAKIURIA [None]
  - PRODUCTIVE COUGH [None]
  - RASH GENERALISED [None]
  - RESPIRATORY DISTRESS [None]
  - STOMATITIS [None]
  - TACHYCARDIA [None]
  - URINARY TRACT INFECTION [None]
  - VOMITING [None]
